FAERS Safety Report 12903301 (Version 1)
Quarter: 2016Q4

REPORT INFORMATION
  Report Type: Spontaneous
  Country: US (occurrence: US)
  Receive Date: 20161101
  Receipt Date: 20161101
  Transmission Date: 20170207
  Serious: Yes (Hospitalization)
  Sender: FDA-Public Use
  Company Number: None

PATIENT
  Age: 73 Year
  Sex: Female

DRUGS (2)
  1. PILOCARPINE. [Concomitant]
     Active Substance: PILOCARPINE
  2. TOBRAMYCIN 300MG AKRON [Suspect]
     Active Substance: TOBRAMYCIN
     Indication: BRONCHIECTASIS
     Dosage: NEB
     Dates: start: 20160317

REACTIONS (1)
  - Hospitalisation [None]
